FAERS Safety Report 8207317-3 (Version None)
Quarter: 2012Q1

REPORT INFORMATION
  Report Type: 
  Country: None (occurrence: None)
  Receive Date: 20120314
  Receipt Date: 20120308
  Transmission Date: 20120608
  Serious: Yes (Other)
  Sender: FDA-Public Use
  Company Number: US-NOVOPROD-323206

PATIENT
  Age: 66 Year
  Sex: Female
  Weight: 115.19 kg

DRUGS (2)
  1. LEVEMIR [Suspect]
     Indication: TYPE 2 DIABETES MELLITUS
     Dosage: 20 U, QD
     Route: 058
     Dates: start: 20110104
  2. SYNTHROID [Concomitant]
     Indication: GOITRE
     Dosage: UNK
     Route: 048
     Dates: start: 20110104

REACTIONS (2)
  - PRURITUS [None]
  - PAIN IN EXTREMITY [None]
